FAERS Safety Report 20300064 (Version 1)
Quarter: 2022Q1

REPORT INFORMATION
  Report Type: Spontaneous
  Country: US (occurrence: None)
  Receive Date: 20220105
  Receipt Date: 20220105
  Transmission Date: 20220423
  Serious: No
  Sender: FDA-Public Use
  Company Number: None

PATIENT
  Age: 68 Year
  Sex: Female
  Weight: 76.66 kg

DRUGS (1)
  1. EVENITY [Suspect]
     Active Substance: ROMOSOZUMAB-AQQG
     Indication: Osteoporosis
     Dosage: OTHER QUANTITY : 210MG (2 SYRINGES);?FREQUENCY : MONTHLY;?
     Route: 058
     Dates: start: 202110

REACTIONS (2)
  - Respiration abnormal [None]
  - Heart rate irregular [None]
